FAERS Safety Report 9865232 (Version 2)
Quarter: 2014Q1

REPORT INFORMATION
  Report Type: Spontaneous
  Country: US (occurrence: US)
  Receive Date: 20140203
  Receipt Date: 20140203
  Transmission Date: 20141002
  Serious: No
  Sender: FDA-Public Use
  Company Number: US-ALLERGAN-1304539US

PATIENT
  Age: 52 Year
  Sex: Female

DRUGS (2)
  1. RESTASIS [Suspect]
     Indication: DRY EYE
     Dosage: 2 GTT, BID
     Route: 047
     Dates: start: 20130110, end: 20130321
  2. SYSTANE BALANCE [Concomitant]
     Indication: PRODUCT USED FOR UNKNOWN INDICATION

REACTIONS (4)
  - Oculogyric crisis [Recovering/Resolving]
  - Oculogyric crisis [Recovering/Resolving]
  - Abnormal sensation in eye [Recovering/Resolving]
  - Foreign body sensation in eyes [Recovered/Resolved]
